FAERS Safety Report 21572188 (Version 2)
Quarter: 2022Q4

REPORT INFORMATION
  Report Type: Report from Study
  Country: US (occurrence: US)
  Receive Date: 20221109
  Receipt Date: 20221213
  Transmission Date: 20230113
  Serious: Yes (Other)
  Sender: FDA-Public Use
  Company Number: US-ABBVIE-4193508

PATIENT
  Sex: Male

DRUGS (1)
  1. VENCLEXTA [Suspect]
     Active Substance: VENETOCLAX
     Indication: Acute myeloid leukaemia
     Dosage: FORM STRENGTH: 100 MG, TAKE 4 TABLETS DAILY WITH FOOD AND A FULL GLASS OF WATER
     Route: 048
     Dates: end: 202211

REACTIONS (2)
  - Transfusion [Unknown]
  - Haemoglobin decreased [Unknown]
